FAERS Safety Report 9600661 (Version 1)
Quarter: 2013Q4

REPORT INFORMATION
  Report Type: Spontaneous
  Country: US (occurrence: US)
  Receive Date: 20131004
  Receipt Date: 20131004
  Transmission Date: 20140711
  Serious: No
  Sender: FDA-Public Use
  Company Number: US-AMGEN-USASP2013036287

PATIENT
  Age: 64 Year
  Sex: Female
  Weight: 77 kg

DRUGS (7)
  1. ENBREL [Suspect]
     Indication: PRODUCT USED FOR UNKNOWN INDICATION
     Dosage: 50 MG, QWK
     Route: 058
  2. ARAVA [Concomitant]
     Dosage: 20 MG, UNK
  3. AVAPRO [Concomitant]
     Dosage: 150 MG, UNK
  4. LIPITOR [Concomitant]
     Dosage: 20 MG, UNK
  5. VITAMIN C                          /00008001/ [Concomitant]
     Dosage: 500 MG SR, UNK
  6. MULTIVITAMINS, PLAIN [Concomitant]
     Dosage: UNK
  7. ALEVE [Concomitant]
     Dosage: 220 MG, UNK

REACTIONS (1)
  - Drug effect decreased [Unknown]
